FAERS Safety Report 5342023-4 (Version None)
Quarter: 2007Q2

REPORT INFORMATION
  Report Type: 
  Country: None (occurrence: None)
  Receive Date: 20070601
  Receipt Date: 20070528
  Transmission Date: 20071010
  Serious: Yes (Disabling)
  Sender: FDA-Public Use
  Company Number: JP-AVENTIS-200412423JP

PATIENT
  Age: 55 Year
  Sex: Female
  Weight: 55 kg

DRUGS (9)
  1. LANTUS [Suspect]
     Route: 058
     Dates: start: 20040419, end: 20040726
  2. OPTIPEN (INSULIN PUMP) [Suspect]
  3. NOVORAPID [Suspect]
     Dosage: DOSE: 8-4-4
     Route: 042
     Dates: start: 20040427, end: 20040723
  4. HUMALOG                            /00030501/ [Suspect]
     Dosage: DOSE: 8-4-4
     Route: 058
     Dates: start: 20040723, end: 20040726
  5. MEVALOTIN [Suspect]
     Route: 048
     Dates: start: 20000426, end: 20040713
  6. KINEDAK [Suspect]
     Indication: DIABETIC NEUROPATHY
     Route: 048
     Dates: start: 20040413, end: 20040713
  7. METHYCOBAL                         /00056201/ [Suspect]
     Indication: DIABETIC NEUROPATHY
     Route: 048
     Dates: start: 20000329, end: 20040723
  8. LENDORMIN [Suspect]
     Indication: INSOMNIA
     Route: 048
     Dates: start: 19970716, end: 20040729
  9. ALOSENN                            /00476901/ [Suspect]
     Indication: CONSTIPATION
     Route: 048
     Dates: start: 19970716, end: 20040729

REACTIONS (1)
  - HEPATIC FUNCTION ABNORMAL [None]
